FAERS Safety Report 11642175 (Version 1)
Quarter: 2015Q4

REPORT INFORMATION
  Report Type: Report from Study
  Country: IT (occurrence: IT)
  Receive Date: 20151019
  Receipt Date: 20151019
  Transmission Date: 20160304
  Serious: Yes (Other)
  Sender: FDA-Public Use
  Company Number: IT-ABBVIE-15P-083-1480855-00

PATIENT
  Age: 63 Year
  Sex: Female
  Weight: 79 kg

DRUGS (1)
  1. DUODOPA [Suspect]
     Active Substance: CARBIDOPA\LEVODOPA
     Indication: PARKINSON^S DISEASE
     Dosage: MD 0.5 +3?CR 1.9?ED 1.7
     Route: 050
     Dates: start: 20111209

REACTIONS (5)
  - Device dislocation [Unknown]
  - Cough [Unknown]
  - Gastrointestinal stoma complication [Unknown]
  - Stoma site haemorrhage [Unknown]
  - Stoma site reaction [Unknown]

NARRATIVE: CASE EVENT DATE: 201501
